FAERS Safety Report 20882712 (Version 1)
Quarter: 2022Q2

REPORT INFORMATION
  Report Type: Spontaneous
  Country: US (occurrence: US)
  Receive Date: 20220527
  Receipt Date: 20220527
  Transmission Date: 20220721
  Serious: No
  Sender: FDA-Public Use
  Company Number: US-AMNEAL PHARMACEUTICALS-2021-AMRX-03031

PATIENT
  Sex: Female

DRUGS (1)
  1. MOMETASONE FUROATE [Suspect]
     Active Substance: MOMETASONE FUROATE
     Indication: Product used for unknown indication
     Dosage: 50 MCG/2 SPRAYS EACH NOSTRIL DAILY
     Route: 045
     Dates: start: 20210616, end: 20210624

REACTIONS (4)
  - Hypoaesthesia [Unknown]
  - Eye pain [Unknown]
  - Nasal discomfort [Unknown]
  - Sinus pain [Unknown]

NARRATIVE: CASE EVENT DATE: 20210623
